FAERS Safety Report 4398564-X (Version None)
Quarter: 2004Q3

REPORT INFORMATION
  Report Type: 
  Country: None (occurrence: None)
  Receive Date: 20040712
  Receipt Date: 20040526
  Transmission Date: 20050211
  Serious: Yes (Death, Life-Threatening)
  Sender: FDA-Public Use
  Company Number: 2004205232EG

PATIENT
  Age: 71 Year
  Sex: Male

DRUGS (13)
  1. CAMPTOSAR [Suspect]
     Indication: SMALL CELL LUNG CANCER STAGE UNSPECIFIED
     Dosage: 100 MG, CYCLIC, IV
     Route: 042
     Dates: start: 20040303, end: 20040310
  2. CISPLATIN USP (CISPLATIN) SOLUTION, STERILE [Suspect]
     Indication: SMALL CELL LUNG CANCER STAGE UNSPECIFIED
     Dosage: 100 MG, CYCLIC, IV
     Route: 042
     Dates: start: 20040303
  3. INSULIN [Concomitant]
  4. ATROPINE [Concomitant]
  5. MANNITOL [Concomitant]
  6. ONDANSETRON HCL [Concomitant]
  7. GRANISETRON (GRANISETRON) [Concomitant]
  8. DEXTROSE INFUSION FLUID [Concomitant]
  9. SODIUM CHLORIDE INJ [Concomitant]
  10. POTASSIUM CHLORIDE [Concomitant]
  11. G-CSF (GRANULOCYTE COLONY STIMULATING FACTOR) [Concomitant]
  12. LASIX [Concomitant]
  13. DEXAMETHASONE [Concomitant]

REACTIONS (18)
  - COMA [None]
  - DIARRHOEA [None]
  - DUODENAL ULCER [None]
  - GASTRIC ULCER [None]
  - GASTROINTESTINAL HAEMORRHAGE [None]
  - GASTROINTESTINAL TOXICITY [None]
  - HAEMATEMESIS [None]
  - HAEMOPTYSIS [None]
  - HICCUPS [None]
  - HYPOTENSION [None]
  - HYPOVOLAEMIC SHOCK [None]
  - MELAENA [None]
  - MUCOSAL INFLAMMATION [None]
  - MULTI-ORGAN FAILURE [None]
  - NEPHROPATHY TOXIC [None]
  - RENAL FAILURE ACUTE [None]
  - STRESS ULCER [None]
  - TUMOUR LYSIS SYNDROME [None]
